FAERS Safety Report 4627308-9 (Version None)
Quarter: 2005Q1

REPORT INFORMATION
  Report Type: 
  Country: None (occurrence: None)
  Receive Date: 20050331
  Receipt Date: 20050323
  Transmission Date: 20050727
  Serious: No
  Sender: FDA-Public Use
  Company Number: 2005UW04588

PATIENT
  Age: 58 Year
  Sex: Male

DRUGS (5)
  1. IRESSA [Suspect]
     Dosage: 250 MG DAILY PO
     Route: 048
  2. CELEBREX [Concomitant]
  3. MORPHINE [Concomitant]
  4. LOSEC [Concomitant]
  5. SENOKOT [Concomitant]

REACTIONS (3)
  - HYPERHIDROSIS [None]
  - NIGHT SWEATS [None]
  - WEIGHT DECREASED [None]
